FAERS Safety Report 10154471 (Version 2)
Quarter: 2014Q2

REPORT INFORMATION
  Report Type: Spontaneous
  Country: JP (occurrence: JP)
  Receive Date: 20140506
  Receipt Date: 20140609
  Transmission Date: 20141212
  Serious: Yes (Death, Hospitalization, Other)
  Sender: FDA-Public Use
  Company Number: JP-ROCHE-1391470

PATIENT
  Age: 37 Year
  Sex: Male
  Weight: 63 kg

DRUGS (30)
  1. AVASTIN [Suspect]
     Indication: NON-SMALL CELL LUNG CANCER METASTATIC
     Dosage: MOST RECENET DOSE 16/DEC/2013
     Route: 041
     Dates: start: 20130722
  2. CARBOPLATIN [Concomitant]
     Indication: NON-SMALL CELL LUNG CANCER METASTATIC
     Route: 041
     Dates: start: 20130722, end: 20131118
  3. PACLITAXEL [Concomitant]
     Indication: NON-SMALL CELL LUNG CANCER METASTATIC
     Route: 041
     Dates: start: 20130722, end: 20131118
  4. LOXONIN [Concomitant]
     Indication: CANCER PAIN
     Dosage: DOSAGE IS UNCERTAIN.
     Route: 048
     Dates: start: 20121212
  5. SALAZOPYRIN [Concomitant]
     Indication: COLITIS ULCERATIVE
     Route: 048
     Dates: end: 20131223
  6. OLMETEC [Concomitant]
     Route: 048
     Dates: end: 20131201
  7. OLMETEC [Concomitant]
     Route: 048
     Dates: start: 20131202, end: 20131208
  8. OLMETEC [Concomitant]
     Route: 048
     Dates: start: 20131209, end: 20131211
  9. OLMETEC [Concomitant]
     Route: 048
     Dates: start: 20131216, end: 20131222
  10. OLMETEC [Concomitant]
     Route: 048
     Dates: start: 20131223, end: 20131223
  11. MUCOSTA [Concomitant]
     Route: 048
     Dates: end: 20131201
  12. MUCOSTA [Concomitant]
     Route: 048
     Dates: start: 20131202, end: 20131208
  13. MUCOSTA [Concomitant]
     Route: 048
     Dates: start: 20131209, end: 20131211
  14. MUCOSTA [Concomitant]
     Route: 048
     Dates: start: 20131216, end: 20131222
  15. MUCOSTA [Concomitant]
     Route: 048
     Dates: start: 20131223, end: 20131223
  16. GLYCYRON [Concomitant]
     Route: 048
     Dates: end: 20131201
  17. GLYCYRON [Concomitant]
     Route: 048
     Dates: start: 20131202, end: 20131208
  18. GLYCYRON [Concomitant]
     Route: 048
     Dates: start: 20131209, end: 20131211
  19. GLYCYRON [Concomitant]
     Route: 048
     Dates: start: 20131216, end: 20131222
  20. GLYCYRON [Concomitant]
     Route: 048
     Dates: start: 20131223, end: 20131223
  21. METHYCOBAL [Concomitant]
     Route: 048
     Dates: end: 20131201
  22. METHYCOBAL [Concomitant]
     Route: 048
     Dates: start: 20131202, end: 20131208
  23. METHYCOBAL [Concomitant]
     Route: 048
     Dates: start: 20131209, end: 20131211
  24. METHYCOBAL [Concomitant]
     Route: 048
     Dates: start: 20131216, end: 20131222
  25. METHYCOBAL [Concomitant]
     Route: 048
     Dates: start: 20131223, end: 20131223
  26. MYSLEE [Concomitant]
     Route: 048
     Dates: end: 20131208
  27. MYSLEE [Concomitant]
     Route: 048
     Dates: start: 20131216, end: 20131222
  28. MYSLEE [Concomitant]
     Route: 048
     Dates: start: 20131223, end: 20131223
  29. NEUTROGIN [Concomitant]
     Route: 058
     Dates: start: 20131202, end: 20131202
  30. SODIUM CHLORIDE [Concomitant]
     Dosage: ISOTONIC SODIUM CHLORIDE SOLUTION
     Route: 041
     Dates: start: 20131216, end: 20131216

REACTIONS (6)
  - Disease progression [Fatal]
  - Cerebral haemorrhage [Recovering/Resolving]
  - Pulmonary embolism [Recovering/Resolving]
  - Metastases to central nervous system [Unknown]
  - Convulsion [Recovered/Resolved]
  - Hangover [Recovered/Resolved]
